FAERS Safety Report 5369994-4 (Version None)
Quarter: 2007Q2

REPORT INFORMATION
  Report Type: 
  Country: None (occurrence: None)
  Receive Date: 20070626
  Receipt Date: 20070620
  Transmission Date: 20071010
  Serious: Yes (Death)
  Sender: FDA-Public Use
  Company Number: PHBS2007SE10404

PATIENT
  Age: 77 Year

DRUGS (1)
  1. EXJADE [Suspect]
     Dosage: UNK, UNK
     Route: 065

REACTIONS (1)
  - DEATH [None]
